FAERS Safety Report 6366656-1 (Version None)
Quarter: 2009Q3

REPORT INFORMATION
  Report Type: 
  Country: None (occurrence: None)
  Receive Date: 20090921
  Receipt Date: 20090916
  Transmission Date: 20100115
  Serious: Yes (Death, Other)
  Sender: FDA-Public Use
  Company Number: PHEH2009US10010

PATIENT
  Sex: Male

DRUGS (12)
  1. EXJADE [Suspect]
     Dosage: 1000 MG DAILY
     Route: 048
  2. PROMETHAZINE DM [Concomitant]
  3. KLOR-CON [Concomitant]
  4. ALDACTONE [Concomitant]
  5. FLOMAX [Concomitant]
  6. ENALAPRIL MALEATE [Concomitant]
  7. CLOTRIMAZOLE [Concomitant]
  8. LASIX [Concomitant]
  9. FOLIC ACID ^LECIVA^ [Concomitant]
  10. CIPRO [Concomitant]
  11. HYDROXYZINE [Concomitant]
  12. NADOLOL [Concomitant]

REACTIONS (5)
  - DIASTOLIC DYSFUNCTION [None]
  - HEPATIC CIRRHOSIS [None]
  - HEPATIC FAILURE [None]
  - INTERSTITIAL LUNG DISEASE [None]
  - OESOPHAGEAL VARICES HAEMORRHAGE [None]
